FAERS Safety Report 8245855-8 (Version None)
Quarter: 2012Q1

REPORT INFORMATION
  Report Type: 
  Country: None (occurrence: None)
  Receive Date: 20120330
  Receipt Date: 20120316
  Transmission Date: 20120608
  Serious: Yes (Hospitalization, Other)
  Sender: FDA-Public Use
  Company Number: AU-RANBAXY-2012RR-53731

PATIENT
  Age: 16 Year
  Sex: Male

DRUGS (6)
  1. SERTRALINE HYDROCHLORIDE [Suspect]
     Indication: MENTAL DISORDER
     Dosage: UNK
     Route: 065
  2. VALPROIC ACID [Suspect]
     Indication: MENTAL DISORDER
     Dosage: UNK
     Route: 065
  3. VALPROIC ACID [Suspect]
     Dosage: 1000 MG, UNK
     Route: 065
  4. FLUOXETINE [Suspect]
     Indication: MENTAL DISORDER
     Dosage: 20 MG/DAY
     Route: 065
  5. FLUOXETINE [Suspect]
     Dosage: 40 MG/DAY
     Route: 065
  6. FLUOXETINE [Suspect]
     Dosage: 60 MG/DAY
     Route: 065

REACTIONS (7)
  - HOMICIDE [None]
  - TREMOR [None]
  - PYROMANIA [None]
  - DRUG INTERACTION [None]
  - AKATHISIA [None]
  - PALPITATIONS [None]
  - SUICIDE ATTEMPT [None]
